FAERS Safety Report 17407872 (Version 1)
Quarter: 2020Q1

REPORT INFORMATION
  Report Type: Spontaneous
  Country: US (occurrence: US)
  Receive Date: 20200212
  Receipt Date: 20200212
  Transmission Date: 20200409
  Serious: Yes (Other)
  Sender: FDA-Public Use
  Company Number: US-MYLANLABS-2020M1015627

PATIENT
  Age: 68 Year
  Sex: Male

DRUGS (7)
  1. AZACITIDINE. [Suspect]
     Active Substance: AZACITIDINE
     Indication: ACUTE MYELOID LEUKAEMIA
     Dosage: ADMINISTERED 3 CYCLES.
     Route: 065
  2. ENASIDENIB [Concomitant]
     Active Substance: ENASIDENIB
     Indication: ACUTE MYELOID LEUKAEMIA
     Route: 065
  3. VORICONAZOLE. [Interacting]
     Active Substance: VORICONAZOLE
     Indication: SINUSITIS ASPERGILLUS
     Dosage: 400 MILLIGRAM, BID
     Route: 065
  4. CYTARABINE. [Suspect]
     Active Substance: CYTARABINE
     Dosage: CONSOLIDATION REGIMEN; HIGH DOSE WAS ADMINISTERED.
     Route: 065
  5. SORAFENIB [Interacting]
     Active Substance: SORAFENIB
     Indication: ACUTE MYELOID LEUKAEMIA
     Dosage: 200 MILLIGRAM, BID
     Route: 065
  6. CYTARABINE. [Suspect]
     Active Substance: CYTARABINE
     Indication: ACUTE MYELOID LEUKAEMIA
     Dosage: INDUCTION REGIMEN; ADMINISTERED 2 CYCLES
     Route: 065
  7. DAUNORUBICIN [Concomitant]
     Active Substance: DAUNORUBICIN
     Indication: ACUTE MYELOID LEUKAEMIA
     Dosage: INDUCTION REGIMEN; ADMINISTERED 2 CYCLES.
     Route: 065

REACTIONS (4)
  - Drug interaction [Recovered/Resolved]
  - Sinusitis aspergillus [Unknown]
  - Drug ineffective [Unknown]
  - Periorbital oedema [Recovered/Resolved]
